FAERS Safety Report 13542572 (Version 1)
Quarter: 2017Q2

REPORT INFORMATION
  Report Type: Spontaneous
  Country: US (occurrence: US)
  Receive Date: 20170512
  Receipt Date: 20170512
  Transmission Date: 20170830
  Serious: Yes (Other)
  Sender: FDA-Public Use
  Company Number: US-ROCHE-757993

PATIENT
  Sex: Female

DRUGS (2)
  1. BETA-BLOCKER [Concomitant]
     Active Substance: UNSPECIFIED INGREDIENT
     Route: 065
  2. AVASTIN [Suspect]
     Active Substance: BEVACIZUMAB
     Indication: OVARIAN CANCER
     Dosage: ABOUT 10 MONTHS AGO
     Route: 042

REACTIONS (1)
  - Blood pressure increased [Unknown]
